FAERS Safety Report 9307156 (Version 3)
Quarter: 2013Q2

REPORT INFORMATION
  Report Type: Report from Study
  Country: NL (occurrence: NL)
  Receive Date: 20130524
  Receipt Date: 20130606
  Transmission Date: 20140414
  Serious: Yes (Hospitalization)
  Sender: FDA-Public Use
  Company Number: NL-ROCHE-1226869

PATIENT
  Age: 41 Year
  Sex: Female

DRUGS (8)
  1. PERTUZUMAB [Suspect]
     Indication: BREAST CANCER
     Dosage: MOST RECENT DOSE PRIOR TO SAE: 07/MAY/2013
     Route: 042
     Dates: start: 20130507
  2. TRASTUZUMAB [Suspect]
     Indication: BREAST CANCER
     Dosage: MOST RECENT DOSE PRIOR TO SAE: 07/MAY/2013
     Route: 042
     Dates: start: 20130507
  3. DOCETAXEL [Suspect]
     Indication: BREAST CANCER
     Dosage: MOST RECENT DOSE PRIOR TO SAE: 08/MAY/2013
     Route: 042
     Dates: start: 20130508
  4. FENTANYL [Concomitant]
     Route: 065
     Dates: start: 20130417
  5. FRAGMIN [Concomitant]
     Route: 065
     Dates: start: 20130417
  6. DICLOFENAC [Concomitant]
     Route: 065
     Dates: start: 20130417
  7. PANTOPRAZOL [Concomitant]
     Route: 065
     Dates: start: 20130417
  8. DEXAMETHASONE [Concomitant]
     Route: 065
     Dates: start: 20130422

REACTIONS (1)
  - Gastroenteritis [Recovered/Resolved]
